FAERS Safety Report 5797222-4 (Version None)
Quarter: 2008Q3

REPORT INFORMATION
  Report Type: 
  Country: None (occurrence: None)
  Receive Date: 20080701
  Receipt Date: 20080619
  Transmission Date: 20090109
  Serious: Yes (Hospitalization)
  Sender: FDA-Public Use
  Company Number: AU-PFIZER INC-2008051937

PATIENT
  Sex: Female

DRUGS (5)
  1. ZELDOX (CAPSULES) [Suspect]
  2. QUETIAPINE FUMARATE [Suspect]
  3. EFFEXOR [Concomitant]
  4. VALPROATE SODIUM [Concomitant]
  5. BENZODIAZEPINE DERIVATIVES [Concomitant]

REACTIONS (1)
  - OVERDOSE [None]
